FAERS Safety Report 10654777 (Version 1)
Quarter: 2014Q4

REPORT INFORMATION
  Report Type: Spontaneous
  Country: US (occurrence: US)
  Receive Date: 20141216
  Receipt Date: 20141216
  Transmission Date: 20150529
  Serious: No
  Sender: FDA-Public Use
  Company Number: US-PFIZER INC-2014342725

PATIENT
  Age: 61 Year

DRUGS (8)
  1. METHOTREXATE [Suspect]
     Active Substance: METHOTREXATE
     Dosage: UNK
  2. PLAQUENIL [Suspect]
     Active Substance: HYDROXYCHLOROQUINE SULFATE
     Dosage: UNK
  3. SEROQUIN [Suspect]
     Active Substance: QUETIAPINE FUMARATE
     Dosage: UNK
  4. ARAVA [Suspect]
     Active Substance: LEFLUNOMIDE
     Dosage: UNK
  5. CELEBREX [Suspect]
     Active Substance: CELECOXIB
     Dosage: UNK
  6. TRAMADOL [Suspect]
     Active Substance: TRAMADOL
     Dosage: UNK
  7. LEVAQUIN [Suspect]
     Active Substance: LEVOFLOXACIN
     Dosage: UNK
  8. LYRICA [Suspect]
     Active Substance: PREGABALIN
     Dosage: UNK

REACTIONS (1)
  - Drug hypersensitivity [Unknown]
